FAERS Safety Report 25990497 (Version 1)
Quarter: 2025Q4

REPORT INFORMATION
  Report Type: Spontaneous
  Country: US (occurrence: US)
  Receive Date: 20251103
  Receipt Date: 20251103
  Transmission Date: 20260118
  Serious: No
  Sender: ROCHE
  Company Number: US-ROCHE-10000419173

PATIENT
  Age: 42 Year
  Sex: Female
  Weight: 77.11 kg

DRUGS (8)
  1. XOLAIR [Suspect]
     Active Substance: OMALIZUMAB
     Indication: Hypersensitivity
     Dosage: AT HOME IN ARM OR STOMACH
     Route: 058
     Dates: start: 202508
  2. XOLAIR [Suspect]
     Active Substance: OMALIZUMAB
     Indication: Urticaria
  3. BENADRYL [Suspect]
     Active Substance: DIPHENHYDRAMINE HYDROCHLORIDE
     Indication: Hypersensitivity
     Dosage: AT NIGHT
     Route: 048
  4. BENADRYL [Suspect]
     Active Substance: DIPHENHYDRAMINE HYDROCHLORIDE
     Indication: Urticaria
  5. ALBUTEROL [Concomitant]
     Active Substance: ALBUTEROL
     Indication: Asthma
     Dosage: 2 PUFFS 2 TIMES A DAY
     Route: 055
     Dates: start: 202411
  6. LORATADINE [Concomitant]
     Active Substance: LORATADINE
     Indication: Hypersensitivity
     Dosage: IN THE MORNING ?FORM OF ADMIN : TABLET OR  LIQUID GEL CAPSULES
     Route: 048
     Dates: start: 202407
  7. LORATADINE [Concomitant]
     Active Substance: LORATADINE
     Indication: Urticaria
  8. CLARITIN [Concomitant]
     Active Substance: LORATADINE
     Indication: Urticaria

REACTIONS (8)
  - Intentional dose omission [Unknown]
  - Urticaria [Not Recovered/Not Resolved]
  - Nasal congestion [Not Recovered/Not Resolved]
  - Lacrimation increased [Not Recovered/Not Resolved]
  - Exposure via skin contact [Unknown]
  - Device defective [Unknown]
  - Somnolence [Unknown]
  - Rhinorrhoea [Not Recovered/Not Resolved]

NARRATIVE: CASE EVENT DATE: 20251002
